FAERS Safety Report 8531420-1 (Version None)
Quarter: 2012Q3

REPORT INFORMATION
  Report Type: 
  Country: None (occurrence: None)
  Receive Date: 20120723
  Receipt Date: 20120717
  Transmission Date: 20120928
  Serious: Yes (Death)
  Sender: FDA-Public Use
  Company Number: CA-ASTRAZENECA-2012SE50235

PATIENT
  Age: 83 Year
  Sex: Male

DRUGS (6)
  1. ZOLADEX [Suspect]
     Route: 058
  2. PROSTATE MEDICATIONS [Concomitant]
  3. PLAVIX [Concomitant]
  4. ATENOLOL [Concomitant]
  5. RABEPRAZOLE SODIUM [Concomitant]
  6. NITROGLYCERIN [Concomitant]

REACTIONS (1)
  - DEATH [None]
